FAERS Safety Report 8334071 (Version 2)
Quarter: 2013Q2

REPORT INFORMATION
  Report Type: Spontaneous
  Country: US (occurrence: None)
  Receive Date: 20111130
  Receipt Date: 20120531
  Transmission Date: 20140414
  Serious: Yes (Other)
  Sender: FDA-Public Use
  Company Number: US201106004329

PATIENT
  Age: 73 Year
  Sex: Male
  Weight: 115.6 kg

DRUGS (13)
  1. BYETTA [Suspect]
     Indication: DIABETES MELLITUS
     Route: 058
     Dates: start: 200804, end: 200808
  2. METFORMIN HYDROCHLORIDE (METFORMIN HYDROCHLORIDE) [Concomitant]
  3. TRICOR (FENOFIBRATE) [Concomitant]
  4. PROSCAR (FINASTERIDE) [Concomitant]
  5. FLOMAX (TAMSULOSIN HYDROCHLORIDE) [Concomitant]
  6. DILTIAZEM (DILTIAZEM) [Concomitant]
  7. METOPROLOL SUCCINATE (METOPROLOL SUCCINATE) [Concomitant]
  8. PRAVASTATIN SODIUM (PRAVASTATIN SODIUM) [Concomitant]
  9. MELATONIN (MELATONIN) [Concomitant]
  10. AMITRIPTYLINE HCL (AMITRIPTYLINE HYDROCHLORIDE) [Concomitant]
  11. NITROGLYCERIN (GLYCERYL TRINITRATE) [Concomitant]
  12. HYDROCHLOROTHIAZIDE (HYDROCHLOROTHIAZIDE) [Concomitant]
  13. NORVASC (AMLODIPINE BESILATE) [Concomitant]

REACTIONS (2)
  - PANCREATITIS [None]
  - RENAL DISORDER [None]
